FAERS Safety Report 9686457 (Version 3)
Quarter: 2013Q4

REPORT INFORMATION
  Report Type: Spontaneous
  Country: DE (occurrence: None)
  Receive Date: 20131108
  Receipt Date: 20131216
  Transmission Date: 20140711
  Serious: Yes (Hospitalization, Other)
  Sender: FDA-Public Use
  Company Number: DE-20130223

PATIENT
  Age: 63 Year
  Sex: Male

DRUGS (2)
  1. DOTAREM [Suspect]
     Indication: NUCLEAR MAGNETIC RESONANCE IMAGING BRAIN
     Dates: start: 20131024, end: 20131024
  2. VALSARTAN (VALSARTAN) (160) (VALSARTAN) [Concomitant]

REACTIONS (6)
  - Throat tightness [None]
  - Dysphagia [None]
  - Dyspnoea [None]
  - Renal impairment [None]
  - Contrast media reaction [None]
  - Renal failure [None]
